FAERS Safety Report 14684385 (Version 2)
Quarter: 2018Q2

REPORT INFORMATION
  Report Type: Spontaneous
  Country: JP (occurrence: JP)
  Receive Date: 20180327
  Receipt Date: 20180629
  Transmission Date: 20180711
  Serious: Yes (Other)
  Sender: FDA-Public Use
  Company Number: JP-BAYER-2018-053720

PATIENT
  Sex: Female

DRUGS (1)
  1. NEXAVAR [Suspect]
     Active Substance: SORAFENIB
     Indication: HEPATOCELLULAR CARCINOMA
     Dosage: DAILY DOSE 800 MG, BID
     Route: 048
     Dates: start: 20161107, end: 20171211

REACTIONS (2)
  - Hepatic cancer [None]
  - Ascites [Recovering/Resolving]

NARRATIVE: CASE EVENT DATE: 20171204
